FAERS Safety Report 18488233 (Version 2)
Quarter: 2020Q4

REPORT INFORMATION
  Report Type: Spontaneous
  Country: US (occurrence: US)
  Receive Date: 20201111
  Receipt Date: 20201125
  Transmission Date: 20210114
  Serious: Yes (Other)
  Sender: FDA-Public Use
  Company Number: US-AMGEN-USASP2020180247

PATIENT
  Sex: Male

DRUGS (3)
  1. POMALYST [Suspect]
     Active Substance: POMALIDOMIDE
     Indication: PRODUCT USED FOR UNKNOWN INDICATION
     Dosage: UNK
     Route: 065
  2. KYPROLIS [Suspect]
     Active Substance: CARFILZOMIB
     Indication: PRODUCT USED FOR UNKNOWN INDICATION
     Dosage: UNK
     Route: 065
  3. KYPROLIS [Suspect]
     Active Substance: CARFILZOMIB
     Dosage: UNK
     Route: 065

REACTIONS (2)
  - Off label use [Unknown]
  - Neutropenia [Unknown]
